FAERS Safety Report 24586875 (Version 1)
Quarter: 2024Q4

REPORT INFORMATION
  Report Type: Spontaneous
  Country: RS (occurrence: RS)
  Receive Date: 20241107
  Receipt Date: 20241107
  Transmission Date: 20250114
  Serious: Yes (Other)
  Sender: ROCHE
  Company Number: RS-ROCHE-10000120855

PATIENT
  Age: 76 Year
  Sex: Male

DRUGS (4)
  1. ATEZOLIZUMAB [Suspect]
     Active Substance: ATEZOLIZUMAB
     Indication: Adenocarcinoma
     Dosage: ON 08-OCT-2024, FOLLOW UP CYCLE WAS GIVEN
     Route: 065
     Dates: start: 20240612
  2. BEVACIZUMAB [Suspect]
     Active Substance: BEVACIZUMAB
     Indication: Adenocarcinoma
     Dosage: ON 08-OCT-2024, FOLLOW UP CYCLE WAS GIVEN
     Route: 065
     Dates: start: 20240612
  3. PACLITAXEL [Concomitant]
     Active Substance: PACLITAXEL
  4. PLATINUM [Concomitant]
     Active Substance: PLATINUM

REACTIONS (2)
  - Metastases to bone [Unknown]
  - Therapy partial responder [Unknown]
